FAERS Safety Report 24349460 (Version 5)
Quarter: 2024Q4

REPORT INFORMATION
  Report Type: Report from Study
  Country: US (occurrence: US)
  Receive Date: 20240923
  Receipt Date: 20241212
  Transmission Date: 20250114
  Serious: Yes (Hospitalization)
  Sender: INSMED
  Company Number: US-INSMED-2023-04982-USAA

PATIENT
  Age: 72 Year
  Sex: Female

DRUGS (3)
  1. ARIKAYCE [Suspect]
     Active Substance: AMIKACIN
     Indication: Product used for unknown indication
     Dosage: 590 MILLIGRAM, ON MONDAY, WEDNESDAY, FRIDAY, AND SATURDAY
     Route: 055
  2. ARIKAYCE [Suspect]
     Active Substance: AMIKACIN
     Dosage: 590 MILLIGRAM, ON MONDAY, WEDNESDAY, FRIDAY, AND SATURDAY
     Route: 055
     Dates: end: 20241204
  3. AMIKACIN [Concomitant]
     Active Substance: AMIKACIN
     Indication: Product used for unknown indication
     Dosage: UNK, UNK
     Route: 042

REACTIONS (7)
  - Hospitalisation [Unknown]
  - Intestinal resection [Unknown]
  - Lung operation [Unknown]
  - Rehabilitation therapy [Not Recovered/Not Resolved]
  - Off label use [Unknown]
  - Therapy interrupted [Unknown]
  - Product dose omission issue [Unknown]

NARRATIVE: CASE EVENT DATE: 20241029
